FAERS Safety Report 5788736-1 (Version None)
Quarter: 2008Q2

REPORT INFORMATION
  Report Type: 
  Country: None (occurrence: None)
  Receive Date: 20080626
  Receipt Date: 20080616
  Transmission Date: 20081010
  Serious: Yes (Disabling)
  Sender: FDA-Public Use
  Company Number: US-ROCHE-385665

PATIENT
  Sex: Female

DRUGS (1)
  1. ACCUTANE [Suspect]
     Indication: ACNE
     Route: 065
     Dates: start: 19961111, end: 19970206

REACTIONS (31)
  - AUTOIMMUNE DISORDER [None]
  - BONE DISORDER [None]
  - BURNS SECOND DEGREE [None]
  - COLITIS [None]
  - COLITIS ULCERATIVE [None]
  - CONNECTIVE TISSUE DISORDER [None]
  - CONSTIPATION [None]
  - EMOTIONAL DISTRESS [None]
  - GASTROINTESTINAL DISORDER [None]
  - HOT FLUSH [None]
  - HYPERHIDROSIS [None]
  - INFLAMMATORY BOWEL DISEASE [None]
  - INTESTINAL HAEMORRHAGE [None]
  - MOUTH ULCERATION [None]
  - MULTI-ORGAN DISORDER [None]
  - MUSCULOSKELETAL DISORDER [None]
  - NAUSEA [None]
  - OSTEOARTHRITIS [None]
  - OSTEOPENIA [None]
  - OSTEOPOROSIS [None]
  - PALINDROMIC RHEUMATISM [None]
  - RECTAL HAEMORRHAGE [None]
  - RECTAL POLYP [None]
  - RESTLESS LEGS SYNDROME [None]
  - RHEUMATOID ARTHRITIS [None]
  - SCOLIOSIS [None]
  - SYSTEMIC LUPUS ERYTHEMATOSUS [None]
  - TEMPOROMANDIBULAR JOINT SYNDROME [None]
  - TENDONITIS [None]
  - VERTIGO [None]
  - WEIGHT INCREASED [None]
